FAERS Safety Report 10943780 (Version 2)
Quarter: 2015Q2

REPORT INFORMATION
  Report Type: Spontaneous
  Country: US (occurrence: US)
  Receive Date: 20150322
  Receipt Date: 20150526
  Transmission Date: 20150821
  Serious: Yes (Other)
  Sender: FDA-Public Use
  Company Number: US-JNJFOC-20150113587

PATIENT
  Age: 30 Year
  Sex: Female
  Weight: 68.95 kg

DRUGS (1)
  1. RISPERDAL CONSTA [Suspect]
     Active Substance: RISPERIDONE
     Indication: SCHIZOPHRENIA
     Route: 030
     Dates: start: 20150102

REACTIONS (3)
  - Refusal of treatment by patient [Unknown]
  - Urinary retention [Recovered/Resolved]
  - Urethral disorder [Recovered/Resolved]

NARRATIVE: CASE EVENT DATE: 20150102
